FAERS Safety Report 15012466 (Version 2)
Quarter: 2018Q2

REPORT INFORMATION
  Report Type: Spontaneous
  Country: US (occurrence: US)
  Receive Date: 20180614
  Receipt Date: 20180615
  Transmission Date: 20180711
  Serious: Yes (Hospitalization, Disabling)
  Sender: FDA-Public Use
  Company Number: US-JNJFOC-20180613648

PATIENT
  Age: 69 Year
  Sex: Male

DRUGS (1)
  1. INVOKANA [Suspect]
     Active Substance: CANAGLIFLOZIN
     Indication: TYPE 2 DIABETES MELLITUS
     Route: 048
     Dates: start: 20130827

REACTIONS (7)
  - Osteomyelitis [Unknown]
  - Skin ulcer [Unknown]
  - Neuropathic arthropathy [Unknown]
  - Cellulitis [Unknown]
  - Diabetic foot infection [Unknown]
  - Toe amputation [Unknown]
  - Leg amputation [Unknown]

NARRATIVE: CASE EVENT DATE: 201707
